FAERS Safety Report 6544734-1 (Version None)
Quarter: 2010Q1

REPORT INFORMATION
  Report Type: 
  Country: None (occurrence: None)
  Receive Date: 20100121
  Receipt Date: 20100111
  Transmission Date: 20100710
  Serious: Yes (Other)
  Sender: FDA-Public Use
  Company Number: US-JNJFOC-20100105814

PATIENT

DRUGS (1)
  1. TOPAMAX [Suspect]
     Indication: DRUG USE FOR UNKNOWN INDICATION
     Route: 048

REACTIONS (5)
  - EYE PAIN [None]
  - HYPOAESTHESIA EYE [None]
  - PERIORBITAL OEDEMA [None]
  - VISUAL IMPAIRMENT [None]
  - WEIGHT DECREASED [None]
